FAERS Safety Report 5608833-0 (Version None)
Quarter: 2008Q1

REPORT INFORMATION
  Report Type: 
  Country: None (occurrence: None)
  Receive Date: 20080128
  Receipt Date: 20080128
  Transmission Date: 20080703
  Serious: Yes (Life-Threatening)
  Sender: FDA-Public Use
  Company Number: None

PATIENT
  Age: 43 Year
  Sex: Male
  Weight: 86.1834 kg

DRUGS (1)
  1. ZOLPIDEM [Suspect]
     Indication: INSOMNIA
     Dosage: 10MG 1XDAY AT BEDTIME PO
     Route: 048
     Dates: start: 20050101, end: 20080117

REACTIONS (3)
  - ABNORMAL SLEEP-RELATED EVENT [None]
  - IMPRISONMENT [None]
  - ROAD TRAFFIC ACCIDENT [None]
